FAERS Safety Report 22706695 (Version 8)
Quarter: 2024Q1

REPORT INFORMATION
  Report Type: Spontaneous
  Country: US (occurrence: US)
  Receive Date: 20230714
  Receipt Date: 20240315
  Transmission Date: 20240409
  Serious: Yes (Other)
  Sender: FDA-Public Use
  Company Number: US-PFIZER INC-202300248066

PATIENT
  Age: 73 Year
  Sex: Male

DRUGS (6)
  1. OXBRYTA [Suspect]
     Active Substance: VOXELOTOR
     Indication: Haemoglobin increased
     Dosage: 1500 MG, 1X/DAY
     Route: 048
     Dates: start: 202301
  2. OXBRYTA [Suspect]
     Active Substance: VOXELOTOR
     Dosage: 3 TABLETS, ONCE DAILY
     Route: 048
     Dates: start: 20230220
  3. OXBRYTA [Suspect]
     Active Substance: VOXELOTOR
     Dosage: 3 TABLETS, ONCE DAILY
     Route: 048
     Dates: start: 20230221
  4. OXBRYTA [Suspect]
     Active Substance: VOXELOTOR
     Dosage: 3 TABLETS ONCE DAILY
     Route: 048
  5. OXBRYTA [Suspect]
     Active Substance: VOXELOTOR
     Dosage: 3 TABLETS ONCE DAILY
     Route: 048
  6. OXBRYTA [Suspect]
     Active Substance: VOXELOTOR
     Dosage: I THOUGHT I HAD NOT TAKEN IT SO I TOOK THREE MORE PILLS
     Route: 048

REACTIONS (8)
  - Haemoglobin decreased [Unknown]
  - Scab [Unknown]
  - Melanocytic naevus [Unknown]
  - Rash [Unknown]
  - Pruritus [Unknown]
  - Accidental overdose [Unknown]
  - Illness [Unknown]
  - Product dose omission in error [Unknown]
